FAERS Safety Report 25161748 (Version 2)
Quarter: 2025Q2

REPORT INFORMATION
  Report Type: Spontaneous
  Country: JP (occurrence: JP)
  Receive Date: 20250404
  Receipt Date: 20250414
  Transmission Date: 20250717
  Serious: Yes (Other)
  Sender: SANOFI AVENTIS
  Company Number: JP-DialogSolutions-SAAVPROD-PI752127-C1

PATIENT
  Age: 69 Year
  Sex: Male

DRUGS (5)
  1. CLOPIDOGREL BISULFATE [Suspect]
     Active Substance: CLOPIDOGREL BISULFATE
     Indication: Cerebral artery occlusion
     Dosage: 75 MG, QD
     Route: 065
  2. CLOPIDOGREL BISULFATE [Suspect]
     Active Substance: CLOPIDOGREL BISULFATE
     Indication: Carotid artery occlusion
  3. ASPIRIN [Concomitant]
     Active Substance: ASPIRIN
     Indication: Vascular stent thrombosis
     Route: 065
  4. ASPIRIN [Concomitant]
     Active Substance: ASPIRIN
     Indication: Carotid artery occlusion
  5. ASPIRIN [Concomitant]
     Active Substance: ASPIRIN
     Indication: Cerebral artery occlusion

REACTIONS (3)
  - Vascular stent thrombosis [Recovered/Resolved]
  - Hemiparesis [Recovered/Resolved]
  - Cerebrovascular disorder [Recovered/Resolved]
